FAERS Safety Report 15379198 (Version 2)
Quarter: 2019Q3

REPORT INFORMATION
  Report Type: Spontaneous
  Country: US (occurrence: US)
  Receive Date: 20180913
  Receipt Date: 20190912
  Transmission Date: 20191004
  Serious: No
  Sender: FDA-Public Use
  Company Number: US-ASTELLAS-2017US035898

PATIENT
  Sex: Male

DRUGS (1)
  1. XTANDI [Suspect]
     Active Substance: ENZALUTAMIDE
     Indication: PROSTATE CANCER
     Route: 048
     Dates: start: 20170815

REACTIONS (12)
  - Secretion discharge [Unknown]
  - Sinus disorder [Unknown]
  - Dyspepsia [Unknown]
  - Abdominal distension [Unknown]
  - Constipation [Unknown]
  - Rash generalised [Unknown]
  - Back pain [Unknown]
  - Hypertension [Unknown]
  - Dyspnoea [Unknown]
  - Diarrhoea [Unknown]
  - Nausea [Unknown]
  - Fatigue [Unknown]
